FAERS Safety Report 14484351 (Version 3)
Quarter: 2018Q2

REPORT INFORMATION
  Report Type: Spontaneous
  Country: US (occurrence: US)
  Receive Date: 20180205
  Receipt Date: 20180615
  Transmission Date: 20180711
  Serious: Yes (Life-Threatening, Disabling, Other)
  Sender: FDA-Public Use
  Company Number: US-ASTRAZENECA-2018SE12552

PATIENT
  Age: 792 Month
  Sex: Male
  Weight: 104.3 kg

DRUGS (24)
  1. MECLIZINE [Concomitant]
     Active Substance: MECLIZINE HYDROCHLORIDE
  2. NEURONTIN [Concomitant]
     Active Substance: GABAPENTIN
  3. LISINOPRIL. [Concomitant]
     Active Substance: LISINOPRIL
  4. ISOSORB [Concomitant]
  5. FUROSEMIDE. [Concomitant]
     Active Substance: FUROSEMIDE
  6. ENOXAPARIN [Concomitant]
     Active Substance: ENOXAPARIN
  7. ASPIRIN. [Concomitant]
     Active Substance: ASPIRIN
  8. NITRO [Concomitant]
     Active Substance: NITROGLYCERIN
  9. PRILOSEC [Suspect]
     Active Substance: OMEPRAZOLE MAGNESIUM
     Indication: GASTROOESOPHAGEAL REFLUX DISEASE
     Route: 048
     Dates: start: 199907, end: 200810
  10. PRILOSEC OTC [Suspect]
     Active Substance: OMEPRAZOLE MAGNESIUM
     Indication: GASTROOESOPHAGEAL REFLUX DISEASE
     Route: 048
     Dates: start: 201112, end: 201801
  11. METOPROLOL. [Concomitant]
     Active Substance: METOPROLOL
  12. CEPHALEXIN. [Concomitant]
     Active Substance: CEPHALEXIN
  13. CARVEDILOL. [Concomitant]
     Active Substance: CARVEDILOL
  14. MAGNESIUM [Concomitant]
     Active Substance: MAGNESIUM
  15. TETRACYCLINE [Concomitant]
     Active Substance: TETRACYCLINE
  16. PROPULSID [Concomitant]
     Active Substance: CISAPRIDE
  17. LIPITOR [Concomitant]
     Active Substance: ATORVASTATIN CALCIUM
  18. ALLOPURINOL. [Concomitant]
     Active Substance: ALLOPURINOL
  19. TRIMOX [Concomitant]
     Active Substance: AMOXICILLIN
  20. NYSTATIN. [Concomitant]
     Active Substance: NYSTATIN
  21. METFORMIN [Concomitant]
     Active Substance: METFORMIN HYDROCHLORIDE
  22. WARFARIN [Concomitant]
     Active Substance: WARFARIN
  23. PROTONIX [Suspect]
     Active Substance: PANTOPRAZOLE SODIUM
     Indication: GASTROOESOPHAGEAL REFLUX DISEASE
     Route: 048
     Dates: start: 2011
  24. ACEON [Concomitant]
     Active Substance: PERINDOPRIL ERBUMINE

REACTIONS (3)
  - Chronic kidney disease [Unknown]
  - Acute kidney injury [Unknown]
  - Renal failure [Unknown]

NARRATIVE: CASE EVENT DATE: 201109
